FAERS Safety Report 21635316 (Version 1)
Quarter: 2022Q4

REPORT INFORMATION
  Report Type: Report from Study
  Country: US (occurrence: US)
  Receive Date: 20221123
  Receipt Date: 20221123
  Transmission Date: 20230113
  Serious: No
  Sender: FDA-Public Use
  Company Number: US-ABBVIE-22K-163-4426345-00

PATIENT
  Sex: Male

DRUGS (6)
  1. IMBRUVICA [Suspect]
     Active Substance: IBRUTINIB
     Indication: Chronic lymphocytic leukaemia
     Route: 048
     Dates: start: 20161130
  2. ELIQUIS [Concomitant]
     Active Substance: APIXABAN
     Indication: Product used for unknown indication
  3. IMBRUVICA [Suspect]
     Active Substance: IBRUTINIB
     Indication: Chronic lymphocytic leukaemia
     Route: 048
     Dates: start: 20180501
  4. MODERNA COVID-19 VACCINE [Concomitant]
     Active Substance: ELASOMERAN
     Indication: COVID-19 immunisation
     Dosage: 1ST DOSE/ 1 IN ONCE
     Route: 030
     Dates: start: 2021, end: 2021
  5. MODERNA COVID-19 VACCINE [Concomitant]
     Active Substance: ELASOMERAN
     Indication: COVID-19 immunisation
     Dosage: 2ND DOSE/ 1IN ONCE/ONSET AND CESSATION DATE: 2021
     Route: 030
  6. MODERNA COVID-19 VACCINE [Concomitant]
     Active Substance: ELASOMERAN
     Indication: COVID-19 immunisation
     Dosage: 3RD DOSE/1 IN ONCE/ONSET AND CESSATION DATE: 2021
     Route: 030

REACTIONS (7)
  - Arrhythmia [Recovered/Resolved]
  - Blood urine present [Unknown]
  - Cellulitis [Unknown]
  - Blood blister [Not Recovered/Not Resolved]
  - Blue toe syndrome [Not Recovered/Not Resolved]
  - Oedema [Unknown]
  - Onycholysis [Unknown]
